FAERS Safety Report 11093303 (Version 1)
Quarter: 2015Q2

REPORT INFORMATION
  Report Type: Spontaneous
  Country: JP (occurrence: JP)
  Receive Date: 20150506
  Receipt Date: 20150506
  Transmission Date: 20150821
  Serious: Yes (Death, Other)
  Sender: FDA-Public Use
  Company Number: JP-JNJFOC-20150422845

PATIENT
  Age: 72 Year

DRUGS (1)
  1. DOXORUBICIN HYDROCHLORIDE. [Suspect]
     Active Substance: DOXORUBICIN HYDROCHLORIDE
     Indication: KAPOSI^S SARCOMA AIDS RELATED
     Route: 042
     Dates: start: 20031108, end: 20031108

REACTIONS (3)
  - Death [Fatal]
  - Anaemia [Unknown]
  - Cardiac failure [Unknown]
